FAERS Safety Report 8132466-8 (Version None)
Quarter: 2012Q1

REPORT INFORMATION
  Report Type: 
  Country: None (occurrence: None)
  Receive Date: 20120213
  Receipt Date: 20120207
  Transmission Date: 20120608
  Serious: Yes (Hospitalization)
  Sender: FDA-Public Use
  Company Number: US-BAYER-2012-013580

PATIENT
  Age: 26 Year
  Sex: Female
  Weight: 63.492 kg

DRUGS (3)
  1. YAZ [Suspect]
     Indication: CONTRACEPTION
     Dosage: UNK
     Dates: start: 20060801, end: 20080601
  2. IBUPROFEN (ADVIL) [Concomitant]
     Dosage: UNK UNK, PRN
     Route: 048
  3. PRILOSEC [Concomitant]
     Route: 048

REACTIONS (4)
  - CHOLECYSTITIS ACUTE [None]
  - ABDOMINAL PAIN [None]
  - DIARRHOEA [None]
  - NAUSEA [None]
